FAERS Safety Report 24202596 (Version 1)
Quarter: 2024Q3

REPORT INFORMATION
  Report Type: Report from Study
  Country: US (occurrence: None)
  Receive Date: 20240813
  Receipt Date: 20240813
  Transmission Date: 20241016
  Serious: Yes (Hospitalization)
  Sender: ASTRAZENECA
  Company Number: 2022A192424

PATIENT
  Sex: Female
  Weight: 88 kg

DRUGS (14)
  1. LYNPARZA [Suspect]
     Active Substance: OLAPARIB
     Indication: Ovarian cancer
     Route: 048
     Dates: start: 20220211
  2. PREGABALIN [Concomitant]
     Active Substance: PREGABALIN
  3. SERTRALINE HYDROCHLORIDE [Concomitant]
     Active Substance: SERTRALINE HYDROCHLORIDE
  4. HUMALOG [Concomitant]
     Active Substance: INSULIN LISPRO
  5. LANTUS [Concomitant]
     Active Substance: INSULIN GLARGINE
  6. MINERALS\VITAMINS [Concomitant]
     Active Substance: MINERALS\VITAMINS
  7. CALTRATE [Concomitant]
     Active Substance: CALCIUM CARBONATE
  8. ATORVASTATIN CALCIUM [Concomitant]
     Active Substance: ATORVASTATIN CALCIUM
  9. PYRIDOXINE [Concomitant]
     Active Substance: PYRIDOXINE
  10. PREGABALIN [Concomitant]
     Active Substance: PREGABALIN
  11. SUPER VITAMIN B COMPLEX [Concomitant]
  12. VITAMIN B12 [Concomitant]
     Active Substance: CYANOCOBALAMIN
  13. VITAMIN D3 [Concomitant]
     Active Substance: CHOLECALCIFEROL
  14. TELMISARTAN [Concomitant]
     Active Substance: TELMISARTAN

REACTIONS (4)
  - Fatigue [Unknown]
  - Gait inability [Unknown]
  - Speech disorder [Unknown]
  - Diabetes mellitus [Unknown]
